FAERS Safety Report 9353765 (Version 1)
Quarter: 2013Q2

REPORT INFORMATION
  Report Type: Spontaneous
  Country: US (occurrence: US)
  Receive Date: 20130618
  Receipt Date: 20130618
  Transmission Date: 20140414
  Serious: Yes (Hospitalization, Other)
  Sender: FDA-Public Use
  Company Number: US-009507513-1306USA006539

PATIENT
  Age: 55 Year
  Sex: Female

DRUGS (1)
  1. PEGINTRON [Suspect]
     Indication: CHRONIC HEPATITIS C
     Dosage: INJECTION
     Route: 058
     Dates: start: 201304, end: 201304

REACTIONS (3)
  - Weight decreased [Recovering/Resolving]
  - Fatigue [Recovering/Resolving]
  - Autoimmune disorder [Recovering/Resolving]
